FAERS Safety Report 19013459 (Version 1)
Quarter: 2021Q1

REPORT INFORMATION
  Report Type: Spontaneous
  Country: US (occurrence: US)
  Receive Date: 20210315
  Receipt Date: 20210315
  Transmission Date: 20210420
  Serious: No
  Sender: FDA-Public Use
  Company Number: US-009507513-2103USA003423

PATIENT
  Sex: Female

DRUGS (4)
  1. MOMETASONE FUROATE (+) FORMOTEROL FUMARATE [Suspect]
     Active Substance: FORMOTEROL FUMARATE\MOMETASONE FUROATE
     Indication: ASTHMA
     Dosage: UNK
     Route: 055
     Dates: start: 2019
  2. SINGULAIR [Concomitant]
     Active Substance: MONTELUKAST SODIUM
  3. PROVENTIL [Suspect]
     Active Substance: ALBUTEROL
  4. PROAIR HFA [Concomitant]
     Active Substance: ALBUTEROL SULFATE
     Dosage: FORMULATION: INHALER

REACTIONS (7)
  - Product use complaint [Unknown]
  - Fall [Not Recovered/Not Resolved]
  - Ankle fracture [Unknown]
  - Ligament sprain [Unknown]
  - Product label issue [Unknown]
  - Wrist fracture [Unknown]
  - Face injury [Unknown]

NARRATIVE: CASE EVENT DATE: 2019
